FAERS Safety Report 10213538 (Version 1)
Quarter: 2014Q2

REPORT INFORMATION
  Report Type: Spontaneous
  Country: GB (occurrence: GB)
  Receive Date: 20140603
  Receipt Date: 20140603
  Transmission Date: 20141212
  Serious: Yes (Life-Threatening, Other)
  Sender: FDA-Public Use
  Company Number: GB-JNJFOC-20140514714

PATIENT
  Age: 57 Year
  Sex: Male
  Weight: 94.4 kg

DRUGS (1)
  1. STELARA [Suspect]
     Indication: PSORIASIS
     Dosage: 90 (DOSE UNSPECIFIED)
     Route: 058
     Dates: start: 20120522, end: 20140429

REACTIONS (1)
  - Metastatic gastric cancer [Not Recovered/Not Resolved]
